FAERS Safety Report 5944089-7 (Version None)
Quarter: 2008Q4

REPORT INFORMATION
  Report Type: 
  Country: None (occurrence: None)
  Receive Date: 20081021
  Receipt Date: 20080812
  Transmission Date: 20090506
  Serious: Yes (Other)
  Sender: FDA-Public Use
  Company Number: US-WYE-H05587908

PATIENT
  Sex: Female

DRUGS (1)
  1. PREMARIN [Suspect]
     Dosage: 0.9MG; FREQUENCY UNKNOWN, ORAL
     Route: 048

REACTIONS (2)
  - ALOPECIA [None]
  - WHEEZING [None]
